FAERS Safety Report 11697690 (Version 3)
Quarter: 2015Q4

REPORT INFORMATION
  Report Type: Spontaneous
  Country: US (occurrence: US)
  Receive Date: 20151104
  Receipt Date: 20151214
  Transmission Date: 20160304
  Serious: Yes (Hospitalization, Other)
  Sender: FDA-Public Use
  Company Number: US-PFIZER INC-2015369811

PATIENT
  Age: 67 Year
  Sex: Female
  Weight: 88.44 kg

DRUGS (7)
  1. IMIPRAMINE [Concomitant]
     Active Substance: IMIPRAMINE
     Indication: ILL-DEFINED DISORDER
     Dosage: 150 MG, DAILY (NIGHT)
     Route: 048
     Dates: start: 1998
  2. METFORMIN HCL [Suspect]
     Active Substance: METFORMIN HYDROCHLORIDE
     Indication: DIABETES MELLITUS
     Dosage: 1000 MG, 5X/DAY (500MG 2X5 PER DAY)
     Dates: start: 201511
  3. BABY ASPIRIN [Concomitant]
     Active Substance: ASPIRIN
     Dosage: 1 DF AT NOON TIME
  4. SERTRALINE HCL [Suspect]
     Active Substance: SERTRALINE HYDROCHLORIDE
     Indication: AFFECT LABILITY
     Dosage: 40 MG, 1X/DAY (AT BED)
     Dates: start: 1998
  5. KLONOPIN [Concomitant]
     Active Substance: CLONAZEPAM
     Dosage: 2 MG, DAILY (NIGHT/AT BEDTIME)
  6. PRAVASTATIN [Concomitant]
     Active Substance: PRAVASTATIN\PRAVASTATIN SODIUM
     Indication: BLOOD CHOLESTEROL
     Dosage: 80 MG, DAILY (AT NIGHT)
     Dates: start: 2009
  7. ATENOLOL. [Concomitant]
     Active Substance: ATENOLOL
     Dosage: 25 MG, UNK
     Route: 048

REACTIONS (9)
  - Abdominal discomfort [Recovered/Resolved]
  - Heart rate irregular [Recovered/Resolved]
  - Diabetes mellitus [Unknown]
  - Rash [Recovered/Resolved]
  - Blood pressure abnormal [Unknown]
  - Insomnia [Recovered/Resolved]
  - Heart rate increased [Recovered/Resolved]
  - Mental disorder [Unknown]
  - Palpitations [Unknown]

NARRATIVE: CASE EVENT DATE: 2009
